FAERS Safety Report 18643162 (Version 1)
Quarter: 2020Q4

REPORT INFORMATION
  Report Type: Spontaneous
  Country: US (occurrence: US)
  Receive Date: 20201221
  Receipt Date: 20201221
  Transmission Date: 20210114
  Serious: Yes (Death)
  Sender: FDA-Public Use
  Company Number: US-PRIMUS PHARMACEUTICALS-2020PRI00197

PATIENT
  Sex: Female

DRUGS (1)
  1. RHEUMATE [Suspect]
     Active Substance: LEVOMEFOLIC ACID\METHYLCOBALAMIN\TURMERIC
     Indication: PSORIATIC ARTHROPATHY
     Dosage: 1 CAPSULES, 1X/DAY
     Dates: end: 2020

REACTIONS (1)
  - Death [Fatal]

NARRATIVE: CASE EVENT DATE: 2020
